FAERS Safety Report 5282855-4 (Version None)
Quarter: 2007Q1

REPORT INFORMATION
  Report Type: 
  Country: None (occurrence: None)
  Receive Date: 20070329
  Receipt Date: 20070329
  Transmission Date: 20070707
  Serious: Yes (Hospitalization)
  Sender: FDA-Public Use
  Company Number: None

PATIENT
  Age: 64 Year
  Sex: Male
  Weight: 73.9363 kg

DRUGS (13)
  1. WARFARIN SODIUM [Suspect]
     Indication: DEEP VEIN THROMBOSIS
     Dosage: 5 MG DAILY PO
     Route: 048
     Dates: start: 20070110, end: 20070328
  2. OXYCODONE HCL [Concomitant]
  3. METFORMIN [Concomitant]
  4. LOPERAMIDE HCL [Concomitant]
  5. TEMAZEPAM [Concomitant]
  6. AMITRIPTYLINE HCL [Concomitant]
  7. ATENOLOL [Concomitant]
  8. FERROUS SULFATE [Concomitant]
  9. GABAPENTIN [Concomitant]
  10. OMEPRAZOLE [Concomitant]
  11. HYDROCODONE [Concomitant]
  12. GLARGINE INSULIN [Concomitant]
  13. LEVOTHYROXINE SODIUM [Concomitant]

REACTIONS (6)
  - ACTIVATED PARTIAL THROMBOPLASTIN TIME PROLONGED [None]
  - ASTHENIA [None]
  - DYSURIA [None]
  - INTERNATIONAL NORMALISED RATIO INCREASED [None]
  - LETHARGY [None]
  - PROTHROMBIN TIME PROLONGED [None]
